FAERS Safety Report 5483231-1 (Version None)
Quarter: 2007Q4

REPORT INFORMATION
  Report Type: 
  Country: None (occurrence: None)
  Receive Date: 20071009
  Receipt Date: 20070920
  Transmission Date: 20080405
  Serious: Yes (Hospitalization)
  Sender: FDA-Public Use
  Company Number: DSA_30671_2007

PATIENT
  Age: 39 Year
  Sex: Female

DRUGS (3)
  1. ORFIDAL (ORFIDAL - LORAZEPAM) [Suspect]
     Indication: INSOMNIA
     Dosage: (25 MG QD ORAL)
     Route: 048
     Dates: start: 20070705, end: 20070725
  2. MABTHERA (MABTHERA - RITUXIMAB) (NOT SPECIFIED) [Suspect]
     Indication: THROMBOCYTOPENIC PURPURA
     Dosage: (DF INTRAVENOUS)
     Route: 042
     Dates: start: 20070712, end: 20070725
  3. VINCRISTINE SULFATE [Suspect]
     Indication: THROMBOCYTOPENIC PURPURA
     Dosage: (DF INTRAVENOUS)
     Route: 042
     Dates: start: 20070712, end: 20070725

REACTIONS (1)
  - STEVENS-JOHNSON SYNDROME [None]
